FAERS Safety Report 8308610-6 (Version None)
Quarter: 2012Q2

REPORT INFORMATION
  Report Type: 
  Country: None (occurrence: None)
  Receive Date: 20120424
  Receipt Date: 20120418
  Transmission Date: 20120825
  Serious: Yes (Hospitalization)
  Sender: FDA-Public Use
  Company Number: JP-ROCHE-584264

PATIENT
  Sex: Male
  Weight: 84 kg

DRUGS (5)
  1. AVASTIN [Suspect]
     Indication: RECTAL CANCER
     Route: 041
     Dates: start: 20080502, end: 20080919
  2. FLUOROURACIL [Concomitant]
     Dosage: ROUTE REPORTED AS INTRAVENOUS BOLUS
     Route: 040
  3. OXALIPLATIN [Concomitant]
     Route: 041
  4. FLUOROURACIL [Concomitant]
     Dosage: ROUTE REPORTED AS INTRAVENOUS DRIP
     Route: 042
  5. LEUCOVORIN CALCIUM [Concomitant]
     Dosage: DRUG REPORTED AS LEVOFOLINATE CALCIUM
     Route: 041

REACTIONS (4)
  - WOUND DEHISCENCE [None]
  - CATHETER SITE PAIN [None]
  - IMPAIRED HEALING [None]
  - IMPLANT SITE EFFUSION [None]
